FAERS Safety Report 24816160 (Version 1)
Quarter: 2025Q1

REPORT INFORMATION
  Report Type: Spontaneous
  Country: RO (occurrence: RO)
  Receive Date: 20250107
  Receipt Date: 20250107
  Transmission Date: 20250408
  Serious: Yes (Death, Other)
  Sender: PFIZER
  Company Number: RO-ROCHE-10000161640

PATIENT
  Age: 76 Year
  Sex: Male
  Weight: 84 kg

DRUGS (2)
  1. BEVACIZUMAB [Suspect]
     Active Substance: BEVACIZUMAB
     Indication: Hepatocellular carcinoma
     Route: 065
  2. ATEZOLIZUMAB [Suspect]
     Active Substance: ATEZOLIZUMAB
     Indication: Hepatocellular carcinoma
     Route: 065

REACTIONS (22)
  - Death [Fatal]
  - Pulmonary mass [Unknown]
  - Hilar lymphadenopathy [Unknown]
  - Lymphadenopathy mediastinal [Unknown]
  - Aortic arteriosclerosis [Unknown]
  - Liver injury [Unknown]
  - Diarrhoea [Unknown]
  - Weight decreased [Unknown]
  - Asthenia [Unknown]
  - Hepatic cytolysis [Unknown]
  - Pain [Unknown]
  - Muscle contractions involuntary [Unknown]
  - Thrombocytopenia [Unknown]
  - Pyrexia [Unknown]
  - Chills [Unknown]
  - Cholestasis [Unknown]
  - Biliary dilatation [Unknown]
  - Leukocytosis [Unknown]
  - Neutrophilia [Unknown]
  - Inflammation [Recovered/Resolved]
  - General physical health deterioration [Unknown]
  - Off label use [Unknown]
